FAERS Safety Report 17220626 (Version 1)
Quarter: 2019Q4

REPORT INFORMATION
  Report Type: Report from Study
  Country: US (occurrence: US)
  Receive Date: 20191231
  Receipt Date: 20191231
  Transmission Date: 20200122
  Serious: Yes (Hospitalization)
  Sender: FDA-Public Use
  Company Number: US-ACTELION-A-NJ2019-196103

PATIENT
  Sex: Female
  Weight: 68.03 kg

DRUGS (1)
  1. VELETRI [Suspect]
     Active Substance: EPOPROSTENOL
     Indication: PULMONARY HYPERTENSION
     Dosage: 36 NG/KG, PER MIN
     Route: 042

REACTIONS (6)
  - Liver disorder [Unknown]
  - Confusional state [Unknown]
  - Ammonia increased [Unknown]
  - Encephalopathy [Unknown]
  - Fall [Unknown]
  - Ulcer haemorrhage [Unknown]
